FAERS Safety Report 9478457 (Version 9)
Quarter: 2014Q1

REPORT INFORMATION
  Report Type: Report from Study
  Country: AU (occurrence: AU)
  Receive Date: 20130827
  Receipt Date: 20140219
  Transmission Date: 20141002
  Serious: Yes (Hospitalization, Other)
  Sender: FDA-Public Use
  Company Number: AU-PFIZER INC-2013147100

PATIENT
  Age: 9 Year
  Sex: Male
  Weight: 26.5 kg

DRUGS (6)
  1. CRIZOTINIB [Suspect]
     Indication: INFLAMMATORY MYOFIBROBLASTIC TUMOUR
     Dosage: 250 MG, 2X/DAY
     Route: 048
     Dates: start: 20130412
  2. PREDNISONE [Suspect]
     Indication: NEPHROTIC SYNDROME
     Dosage: 50 MG, 1X/DAY
     Route: 048
     Dates: start: 20130401
  3. PREDNISONE [Suspect]
     Dosage: 30 MG, ALTERNATE DAY
  4. PREDNISONE [Suspect]
     Dosage: 2.5 MG, ALTERNATE DAY
     Route: 048
  5. LEVAMISOLE [Suspect]
     Indication: NEPHROTIC SYNDROME
     Dosage: 62.5 MG, ALTERNATE DAY
     Route: 048
     Dates: start: 20130417
  6. RANITIDINE [Concomitant]
     Indication: PROPHYLAXIS AGAINST GASTROINTESTINAL ULCER
     Dosage: 75 MG, 2X/DAY
     Route: 048
     Dates: start: 20130401

REACTIONS (34)
  - Pericardial effusion [Unknown]
  - Neutropenia [Unknown]
  - Weight increased [Unknown]
  - Nephrotic syndrome [Recovering/Resolving]
  - Rhinovirus infection [Recovered/Resolved]
  - Pyrexia [Recovered/Resolved]
  - Osteonecrosis [Recovering/Resolving]
  - Tremor [Recovering/Resolving]
  - Vision blurred [Recovering/Resolving]
  - Diplopia [Recovering/Resolving]
  - Platelet count increased [Not Recovered/Not Resolved]
  - Alanine aminotransferase increased [Recovered/Resolved]
  - Aspartate aminotransferase increased [Recovering/Resolving]
  - Gamma-glutamyltransferase increased [Unknown]
  - Lymphocyte count decreased [Not Recovered/Not Resolved]
  - Alopecia [Unknown]
  - Diarrhoea [Not Recovered/Not Resolved]
  - Fat necrosis [Recovered/Resolved]
  - Oesophagitis [Unknown]
  - Colitis [Unknown]
  - Hyperkalaemia [Recovered/Resolved]
  - Nausea [Unknown]
  - White blood cell count decreased [Not Recovered/Not Resolved]
  - Neutrophil count decreased [Not Recovered/Not Resolved]
  - Anaemia [Recovered/Resolved]
  - Myopathy [Recovering/Resolving]
  - Cushingoid [Recovered/Resolved]
  - Thrombophlebitis superficial [Unknown]
  - Hypoalbuminaemia [Not Recovered/Not Resolved]
  - Muscular weakness [Recovered/Resolved]
  - Protein total decreased [Unknown]
  - White blood cell count increased [Recovered/Resolved]
  - Neutrophil count increased [Recovered/Resolved]
  - Proteinuria [Unknown]
